FAERS Safety Report 13600788 (Version 2)
Quarter: 2017Q2

REPORT INFORMATION
  Report Type: Spontaneous
  Country: CH (occurrence: US)
  Receive Date: 20170601
  Receipt Date: 20170610
  Transmission Date: 20170830
  Serious: Yes (Other)
  Sender: FDA-Public Use
  Company Number: US-CONCORDIA PHARMACEUTICALS INC.-GSH201705-003262

PATIENT
  Age: 68 Year
  Sex: Female

DRUGS (1)
  1. DIGOXIN. [Suspect]
     Active Substance: DIGOXIN

REACTIONS (2)
  - Toxicity to various agents [Unknown]
  - Photopsia [Recovered/Resolved]
